FAERS Safety Report 9694896 (Version 1)
Quarter: 2013Q4

REPORT INFORMATION
  Report Type: Spontaneous
  Country: US (occurrence: US)
  Receive Date: 20131119
  Receipt Date: 20131119
  Transmission Date: 20140711
  Serious: No
  Sender: FDA-Public Use
  Company Number: US-PFIZER INC-2013325656

PATIENT
  Age: 75 Year
  Sex: Female

DRUGS (1)
  1. INLYTA [Suspect]
     Dosage: 15 MG, DAILY (3 TABLETS)
     Dates: start: 20130228

REACTIONS (2)
  - Weight decreased [Unknown]
  - Decreased appetite [Unknown]
